FAERS Safety Report 12288199 (Version 9)
Quarter: 2016Q3

REPORT INFORMATION
  Report Type: Spontaneous
  Country: CA (occurrence: CA)
  Receive Date: 20160420
  Receipt Date: 20160714
  Transmission Date: 20161109
  Serious: Yes (Hospitalization, Other)
  Sender: FDA-Public Use
  Company Number: CA-009507513-1603CAN005075

PATIENT
  Age: 65 Year
  Sex: Female
  Weight: 59.9 kg

DRUGS (4)
  1. KEYTRUDA [Suspect]
     Active Substance: PEMBROLIZUMAB
     Dosage: 118 MG (2 MG/KG), Q3W
     Route: 042
     Dates: start: 2016, end: 20160615
  2. KEYTRUDA [Suspect]
     Active Substance: PEMBROLIZUMAB
     Indication: METASTATIC MALIGNANT MELANOMA
     Dosage: 118 MG, Q3W
     Route: 042
     Dates: start: 20160215, end: 20160516
  3. KEYTRUDA [Suspect]
     Active Substance: PEMBROLIZUMAB
     Dosage: 118 MG, Q3W
     Route: 042
  4. KEYTRUDA [Suspect]
     Active Substance: PEMBROLIZUMAB
     Dosage: 118 MG, Q3W
     Route: 042
     Dates: start: 20160215

REACTIONS (18)
  - Seizure [Unknown]
  - Seizure [Recovering/Resolving]
  - Fall [Unknown]
  - Weight decreased [Unknown]
  - Circumstance or information capable of leading to medication error [Unknown]
  - Depression [Unknown]
  - Feeling abnormal [Unknown]
  - Hip fracture [Unknown]
  - Dyspnoea [Unknown]
  - Adverse event [Unknown]
  - Fatigue [Unknown]
  - Drug dose omission [Unknown]
  - Anxiety [Unknown]
  - Somnolence [Unknown]
  - Pain [Unknown]
  - Nausea [Unknown]
  - Seizure [Unknown]
  - Appetite disorder [Unknown]

NARRATIVE: CASE EVENT DATE: 2016
